FAERS Safety Report 15472147 (Version 2)
Quarter: 2018Q4

REPORT INFORMATION
  Report Type: Spontaneous
  Country: JP (occurrence: JP)
  Receive Date: 20181008
  Receipt Date: 20181008
  Transmission Date: 20190205
  Serious: Yes (Hospitalization)
  Sender: FDA-Public Use
  Company Number: JP-TEVA-2018-JP-001964J

PATIENT
  Age: 63 Year
  Sex: Male

DRUGS (6)
  1. CARERAM [Concomitant]
     Active Substance: IGURATIMOD
     Dosage: 25 MILLIGRAM DAILY;
     Route: 048
  2. NEXIUM [Concomitant]
     Active Substance: ESOMEPRAZOLE MAGNESIUM
     Dosage: 20 MILLIGRAM DAILY;
     Route: 048
  3. PREDNISOLONE TABLETS 5MG. [Suspect]
     Active Substance: PREDNISOLONE
     Indication: INTERSTITIAL LUNG DISEASE
     Dosage: 7.5 MILLIGRAM DAILY;
     Route: 048
     Dates: start: 20130226
  4. EDIROL [Concomitant]
     Active Substance: ELDECALCITOL
     Dosage: .75 MILLIGRAM DAILY;
     Route: 048
  5. BASEN OD TABLETS 0.2 [Suspect]
     Active Substance: VOGLIBOSE
     Indication: DIABETES MELLITUS
     Dosage: .6 MILLIGRAM DAILY;
     Route: 048
     Dates: start: 20130301, end: 20180511
  6. FEBURIC [Concomitant]
     Active Substance: FEBUXOSTAT
     Dosage: 10 MILLIGRAM DAILY;
     Route: 048

REACTIONS (2)
  - Pneumatosis intestinalis [Recovering/Resolving]
  - Pneumoperitoneum [Recovering/Resolving]

NARRATIVE: CASE EVENT DATE: 20180511
